FAERS Safety Report 4610959-5 (Version None)
Quarter: 2005Q2

REPORT INFORMATION
  Report Type: 
  Country: None (occurrence: None)
  Receive Date: 20050303
  Receipt Date: 20041028
  Transmission Date: 20051028
  Serious: No
  Sender: FDA-Public Use
  Company Number: 702365

PATIENT
  Age: 49 Year
  Sex: Male

DRUGS (7)
  1. AMEVIVE [Suspect]
     Indication: PSORIASIS
     Dosage: QW;IM
     Route: 030
     Dates: start: 20041005
  2. DARVOCET [Concomitant]
  3. DEXEDRINE [Concomitant]
  4. PROLIXIN [Concomitant]
  5. CLONAZEPAN [Concomitant]
  6. ATENORETIC [Concomitant]
  7. PROMETHEZINE [Concomitant]

REACTIONS (4)
  - FATIGUE [None]
  - HAEMOGLOBIN INCREASED [None]
  - INFLUENZA LIKE ILLNESS [None]
  - SCHIZOPHRENIA [None]
